FAERS Safety Report 9150134 (Version 2)
Quarter: 2013Q2

REPORT INFORMATION
  Report Type: Spontaneous
  Country: US (occurrence: US)
  Receive Date: 20130308
  Receipt Date: 20130405
  Transmission Date: 20140414
  Serious: Yes (Other)
  Sender: FDA-Public Use
  Company Number: PHEH2013US005141

PATIENT
  Sex: Female

DRUGS (1)
  1. RECLAST [Suspect]
     Indication: OSTEOPOROSIS
     Dates: start: 20110218

REACTIONS (19)
  - Swelling [Unknown]
  - Nervous system disorder [Unknown]
  - Injury [Unknown]
  - Bone disorder [Unknown]
  - Arthropathy [Unknown]
  - Cyst [Unknown]
  - Joint range of motion decreased [Unknown]
  - Tooth fracture [Unknown]
  - Emotional distress [Unknown]
  - Fear [Unknown]
  - Anxiety [Unknown]
  - Anhedonia [Unknown]
  - Low turnover osteopathy [Unknown]
  - Quality of life decreased [Unknown]
  - Condition aggravated [Unknown]
  - Bone density decreased [Unknown]
  - Pain [Unknown]
  - Musculoskeletal stiffness [Unknown]
  - Myalgia [Unknown]
